FAERS Safety Report 21984568 (Version 1)
Quarter: 2023Q1

REPORT INFORMATION
  Report Type: Spontaneous
  Country: US (occurrence: None)
  Receive Date: 20230210
  Receipt Date: 20230210
  Transmission Date: 20230417
  Serious: Yes (unspecified)
  Sender: FDA-Public Use
  Company Number: None

PATIENT
  Age: 75 Year
  Sex: Male
  Weight: 81 kg

DRUGS (5)
  1. PREDNISONE [Suspect]
     Active Substance: PREDNISONE
     Indication: Cough
     Dosage: 5 TABLETS DAILY ORAL?
     Route: 048
     Dates: start: 20230208, end: 20230210
  2. PREDNISONE [Suspect]
     Active Substance: PREDNISONE
     Indication: Productive cough
  3. LISINOPRIL [Concomitant]
     Active Substance: LISINOPRIL
  4. Eye Vitamins Prevagen [Concomitant]
  5. MELATONIN [Concomitant]
     Active Substance: MELATONIN

REACTIONS (2)
  - Musculoskeletal chest pain [None]
  - Chest discomfort [None]

NARRATIVE: CASE EVENT DATE: 20230210
